FAERS Safety Report 12463753 (Version 1)
Quarter: 2016Q2

REPORT INFORMATION
  Report Type: Spontaneous
  Country: US (occurrence: None)
  Receive Date: 20160613
  Receipt Date: 20160613
  Transmission Date: 20160815
  Serious: Yes (Hospitalization)
  Sender: FDA-Public Use
  Company Number: None

PATIENT
  Age: 25 Year
  Sex: Female
  Weight: 47.8 kg

DRUGS (6)
  1. GELNIQUE [Suspect]
     Active Substance: OXYBUTYNIN CHLORIDE
     Indication: HYPERHIDROSIS
     Route: 061
     Dates: start: 20160517, end: 20160520
  2. IMURAN [Concomitant]
     Active Substance: AZATHIOPRINE
  3. PROGRAF [Concomitant]
     Active Substance: TACROLIMUS\TACROLIMUS ANHYDROUS
  4. BACTRIM [Concomitant]
     Active Substance: SULFAMETHOXAZOLE\TRIMETHOPRIM
  5. PREDNISONE. [Concomitant]
     Active Substance: PREDNISONE
  6. ACETAMINOPHEN. [Concomitant]
     Active Substance: ACETAMINOPHEN

REACTIONS (5)
  - Back pain [None]
  - Hyperhidrosis [None]
  - Sepsis [None]
  - Klebsiella bacteraemia [None]
  - Pyelonephritis [None]

NARRATIVE: CASE EVENT DATE: 20160521
